FAERS Safety Report 7811414-1 (Version None)
Quarter: 2011Q4

REPORT INFORMATION
  Report Type: 
  Country: None (occurrence: None)
  Receive Date: 20111013
  Receipt Date: 20111005
  Transmission Date: 20120403
  Serious: Yes (Life-Threatening, Other)
  Sender: FDA-Public Use
  Company Number: MW-BRISTOL-MYERS SQUIBB COMPANY-16091480

PATIENT
  Age: 31 Year
  Sex: Male
  Weight: 60 kg

DRUGS (3)
  1. LAMIVUDINE [Suspect]
     Indication: HIV INFECTION
     Dosage: LAST DOSE:19SEP11
     Route: 048
     Dates: start: 20110621
  2. EFAVIRENZ [Suspect]
     Indication: HIV INFECTION
     Dosage: LAST DOSE:19SEP11
     Route: 048
     Dates: start: 20110621
  3. STAVUDINE [Suspect]
     Indication: HIV INFECTION
     Dosage: LAST DOSE:19SEP11
     Route: 048
     Dates: start: 20110830

REACTIONS (1)
  - NEUTROPHIL COUNT DECREASED [None]
